FAERS Safety Report 12204505 (Version 6)
Quarter: 2016Q3

REPORT INFORMATION
  Report Type: Spontaneous
  Country: US (occurrence: US)
  Receive Date: 20160323
  Receipt Date: 20160908
  Transmission Date: 20161109
  Serious: Yes (Other)
  Sender: FDA-Public Use
  Company Number: US-PFIZER INC-2016146642

PATIENT
  Age: 75 Year
  Sex: Female
  Weight: 81.18 kg

DRUGS (5)
  1. IBRANCE [Suspect]
     Active Substance: PALBOCICLIB
     Dosage: UNK UNK, CYCLIC
  2. IBRANCE [Suspect]
     Active Substance: PALBOCICLIB
     Dosage: 125 MG, CYCLIC, (DAY 1-21 Q 28 DAYS)
     Route: 048
     Dates: start: 20160209
  3. IBRANCE [Suspect]
     Active Substance: PALBOCICLIB
     Indication: BREAST CANCER METASTATIC
     Dosage: 125 MG, CYCLIC (DAYS 1 - 21 EVERY 28 DAYS)
     Route: 048
     Dates: start: 20160219
  4. IBRANCE [Suspect]
     Active Substance: PALBOCICLIB
     Dosage: UNK
     Route: 048
  5. IBRANCE [Suspect]
     Active Substance: PALBOCICLIB
     Dosage: UNK
     Route: 048

REACTIONS (13)
  - Blindness [Unknown]
  - Diarrhoea [Unknown]
  - Abdominal pain upper [Recovered/Resolved]
  - Tumour marker increased [Unknown]
  - Abnormal faeces [Recovered/Resolved]
  - Bowel movement irregularity [Unknown]
  - Melaena [Unknown]
  - Blood glucose increased [Unknown]
  - Depression [Unknown]
  - Fatigue [Unknown]
  - Faeces discoloured [Recovered/Resolved]
  - Stomatitis [Unknown]
  - Neuropathy peripheral [Unknown]

NARRATIVE: CASE EVENT DATE: 201606
